FAERS Safety Report 17081543 (Version 1)
Quarter: 2019Q4

REPORT INFORMATION
  Report Type: Spontaneous
  Country: US (occurrence: US)
  Receive Date: 20191126
  Receipt Date: 20191126
  Transmission Date: 20200122
  Serious: Yes (Hospitalization)
  Sender: FDA-Public Use
  Company Number: None

PATIENT
  Age: 54 Year
  Sex: Male
  Weight: 103.5 kg

DRUGS (3)
  1. BENADRYL 50MG PO [Concomitant]
     Dates: start: 20191123
  2. TYLENOL 650MG PO [Concomitant]
     Dates: start: 20191123
  3. GAMUNEX [Suspect]
     Active Substance: HUMAN IMMUNOGLOBULIN G
     Indication: CHRONIC INFLAMMATORY DEMYELINATING POLYRADICULONEUROPATHY
     Dosage: ?          OTHER FREQUENCY:TWICE WEEKLY;?
     Route: 041
     Dates: start: 20191123

REACTIONS (2)
  - Heart rate irregular [None]
  - Dizziness [None]

NARRATIVE: CASE EVENT DATE: 20191123
